FAERS Safety Report 9996327 (Version 1)
Quarter: 2014Q1

REPORT INFORMATION
  Report Type: Spontaneous
  Country: US (occurrence: None)
  Receive Date: 20140310
  Receipt Date: 20140310
  Transmission Date: 20141002
  Serious: Yes (Hospitalization)
  Sender: FDA-Public Use
  Company Number: None

PATIENT
  Age: 85 Year
  Sex: Male
  Weight: 96.6 kg

DRUGS (1)
  1. LORAZEPAM [Suspect]
     Route: 042
     Dates: start: 20131225, end: 20131225

REACTIONS (2)
  - Sedation [None]
  - Mental status changes [None]
